FAERS Safety Report 8409769-2 (Version None)
Quarter: 2012Q2

REPORT INFORMATION
  Report Type: 
  Country: None (occurrence: None)
  Receive Date: 20120605
  Receipt Date: 20120511
  Transmission Date: 20120825
  Serious: Yes (Other)
  Sender: FDA-Public Use
  Company Number: SI-JNJFOC-20120510620

PATIENT
  Age: 55 Year
  Sex: Male
  Weight: 82 kg

DRUGS (9)
  1. REMICADE [Suspect]
     Indication: ANKYLOSING SPONDYLITIS
     Route: 042
     Dates: start: 20081020, end: 20111123
  2. ULTOP [Concomitant]
     Route: 065
  3. MICARDIS [Concomitant]
     Route: 065
  4. ROCALTROL [Concomitant]
     Route: 065
  5. CALCIUM CARBONATE [Concomitant]
     Route: 065
  6. LYRICA [Concomitant]
     Route: 065
  7. CILAZIL [Concomitant]
     Route: 065
  8. INSULIN GLARGINE [Concomitant]
     Route: 065
  9. TRAMADOL HCL [Concomitant]
     Route: 065

REACTIONS (3)
  - ABDOMINAL PAIN [None]
  - NEPHROLITHIASIS [None]
  - HAEMATURIA [None]
